FAERS Safety Report 8001035-2 (Version None)
Quarter: 2011Q4

REPORT INFORMATION
  Report Type: 
  Country: None (occurrence: None)
  Receive Date: 20111222
  Receipt Date: 20110628
  Transmission Date: 20120403
  Serious: No
  Sender: FDA-Public Use
  Company Number: US-GLAXOSMITHKLINE-A0935044A

PATIENT
  Age: 63 Year
  Sex: Female

DRUGS (1)
  1. FLOVENT [Suspect]
     Route: 065
     Dates: end: 20110624

REACTIONS (2)
  - INSOMNIA [None]
  - COUGH [None]
